FAERS Safety Report 19049783 (Version 1)
Quarter: 2021Q1

REPORT INFORMATION
  Report Type: Spontaneous
  Country: CA (occurrence: CA)
  Receive Date: 20210323
  Receipt Date: 20210323
  Transmission Date: 20210420
  Serious: Yes (Hospitalization, Other)
  Sender: FDA-Public Use
  Company Number: CA-009507513-2103CAN005197

PATIENT
  Age: 59 Year
  Sex: Female

DRUGS (1)
  1. KEYTRUDA [Suspect]
     Active Substance: PEMBROLIZUMAB
     Indication: NON-SMALL CELL LUNG CANCER
     Dosage: UNK, CYCLICAL

REACTIONS (3)
  - Product use issue [Unknown]
  - Paraneoplastic dermatomyositis [Recovered/Resolved]
  - Dermatomyositis [Recovered/Resolved]
